FAERS Safety Report 9356066 (Version 2)
Quarter: 2013Q3

REPORT INFORMATION
  Report Type: Spontaneous
  Country: CH (occurrence: CH)
  Receive Date: 20130619
  Receipt Date: 20130905
  Transmission Date: 20140515
  Serious: Yes (Life-Threatening, Hospitalization)
  Sender: FDA-Public Use
  Company Number: CH-INCYTE CORPORATION-2013IN001253

PATIENT
  Sex: Female

DRUGS (2)
  1. JAKAVI [Suspect]
     Indication: MYELOFIBROSIS
     Dosage: 20 MG, BID
     Route: 048
     Dates: start: 20130304, end: 20130424
  2. JAKAVI [Suspect]
     Dosage: 10 MG, BID
     Route: 048
     Dates: start: 20130424, end: 20130426

REACTIONS (13)
  - Splenic rupture [Unknown]
  - Inflammation [Unknown]
  - Abdominal pain [Unknown]
  - Hypotension [Unknown]
  - Abdominal discomfort [Unknown]
  - Splenomegaly [Unknown]
  - Anaemia [Unknown]
  - Pancytopenia [Unknown]
  - Platelet count decreased [Unknown]
  - Leukocytosis [Unknown]
  - Thrombocytosis [Unknown]
  - Fatigue [Unknown]
  - Pyrexia [Unknown]
